FAERS Safety Report 15213081 (Version 1)
Quarter: 2018Q3

REPORT INFORMATION
  Report Type: Spontaneous
  Country: JP (occurrence: JP)
  Receive Date: 20180730
  Receipt Date: 20180730
  Transmission Date: 20181010
  Serious: Yes (Other)
  Sender: FDA-Public Use
  Company Number: JP-ASTRAZENECA-2018SE75678

PATIENT
  Age: 68 Year
  Sex: Male
  Weight: 77 kg

DRUGS (12)
  1. OMEPRAZOLE. [Concomitant]
     Active Substance: OMEPRAZOLE
  2. CUBICIN [Suspect]
     Active Substance: DAPTOMYCIN
     Indication: INFECTION
     Route: 041
     Dates: start: 20180510, end: 20180511
  3. CUBICIN [Suspect]
     Active Substance: DAPTOMYCIN
     Indication: INFECTION
     Route: 041
     Dates: start: 20180511, end: 20180511
  4. TELMISARTAN. [Concomitant]
     Active Substance: TELMISARTAN
     Dates: end: 20180508
  5. CUBICIN [Suspect]
     Active Substance: DAPTOMYCIN
     Indication: INFECTION
     Route: 041
     Dates: start: 20180503, end: 20180510
  6. CUBICIN [Suspect]
     Active Substance: DAPTOMYCIN
     Indication: INFECTION
     Route: 041
     Dates: start: 20180510, end: 20180511
  7. ROSUVASTATIN. [Suspect]
     Active Substance: ROSUVASTATIN
     Route: 048
     Dates: end: 20180509
  8. BISOPROLOL [Concomitant]
     Active Substance: BISOPROLOL
  9. CUBICIN [Suspect]
     Active Substance: DAPTOMYCIN
     Indication: INFECTION
     Route: 041
     Dates: start: 20180503, end: 20180510
  10. CUBICIN [Suspect]
     Active Substance: DAPTOMYCIN
     Indication: INFECTION
     Route: 041
     Dates: start: 20180511, end: 20180511
  11. TRICHLORMETHIAZIDE [Concomitant]
     Active Substance: TRICHLORMETHIAZIDE
  12. TORASEMIDE [Concomitant]
     Active Substance: TORSEMIDE
     Dates: end: 20180508

REACTIONS (3)
  - Overdose [Unknown]
  - Drug interaction [Unknown]
  - Rhabdomyolysis [Recovered/Resolved]

NARRATIVE: CASE EVENT DATE: 20180508
